FAERS Safety Report 21688605 (Version 1)
Quarter: 2022Q4

REPORT INFORMATION
  Report Type: Spontaneous
  Country: US (occurrence: None)
  Receive Date: 20221205
  Receipt Date: 20221205
  Transmission Date: 20230112
  Serious: No
  Sender: FDA-Public Use
  Company Number: None

PATIENT
  Age: 70 Year
  Sex: Female

DRUGS (1)
  1. FORTEO [Suspect]
     Active Substance: TERIPARATIDE
     Indication: Senile osteoporosis
     Dosage: FREQUENCY : DAILY;?
     Route: 058

REACTIONS (10)
  - Dry eye [None]
  - Eye irritation [None]
  - Vision blurred [None]
  - Somnolence [None]
  - Chills [None]
  - Hypersomnia [None]
  - Memory impairment [None]
  - Balance disorder [None]
  - Speech disorder [None]
  - Therapy cessation [None]
